FAERS Safety Report 4791419-8 (Version None)
Quarter: 2005Q4

REPORT INFORMATION
  Report Type: 
  Country: None (occurrence: None)
  Receive Date: 20051007
  Receipt Date: 20050617
  Transmission Date: 20060501
  Serious: Yes (Hospitalization, Disabling)
  Sender: FDA-Public Use
  Company Number: US-MERCK-0506USA02804

PATIENT
  Age: 48 Year
  Sex: Male
  Weight: 154 kg

DRUGS (6)
  1. VIOXX [Suspect]
     Indication: BACK PAIN
     Route: 048
     Dates: start: 20000411, end: 20040901
  2. DIOVAN [Concomitant]
     Indication: HYPERTENSION
     Route: 048
     Dates: start: 19991001
  3. PLENDIL [Concomitant]
     Route: 048
     Dates: start: 19990301, end: 20001001
  4. MOTRIN [Concomitant]
     Route: 065
     Dates: start: 19980101, end: 20000401
  5. ASPIRIN [Concomitant]
     Route: 048
  6. ULTRAM [Concomitant]
     Route: 048
     Dates: start: 20000401

REACTIONS (9)
  - CHEST DISCOMFORT [None]
  - CORONARY ARTERY DISEASE [None]
  - DEHYDRATION [None]
  - DIZZINESS [None]
  - DYSPNOEA [None]
  - GASTROOESOPHAGEAL REFLUX DISEASE [None]
  - LUMBAR RADICULOPATHY [None]
  - MYOCARDIAL INFARCTION [None]
  - NAUSEA [None]
